FAERS Safety Report 17096389 (Version 1)
Quarter: 2019Q4

REPORT INFORMATION
  Report Type: Spontaneous
  Country: DE (occurrence: DE)
  Receive Date: 20191202
  Receipt Date: 20191202
  Transmission Date: 20200122
  Serious: Yes (Other)
  Sender: FDA-Public Use
  Company Number: DE-SUN PHARMACEUTICAL INDUSTRIES LTD-2019RR-229382

PATIENT
  Age: 1 Day
  Sex: Female
  Weight: 2.34 kg

DRUGS (3)
  1. SUMATRIPTAN. [Suspect]
     Active Substance: SUMATRIPTAN
     Indication: MIGRAINE
     Dosage: 100 MILLIGRAM, UNK
     Route: 064
  2. FOLSAURE [Concomitant]
     Active Substance: FOLIC ACID
     Indication: PROPHYLAXIS OF NEURAL TUBE DEFECT
     Dosage: 0.4 MILLIGRAM, DAILY
     Route: 064
     Dates: start: 20180627, end: 20190321
  3. CLEXANE [Concomitant]
     Active Substance: ENOXAPARIN SODIUM
     Indication: HYPERCOAGULATION
     Dosage: 40 MILLIGRAM, DAILY
     Route: 064

REACTIONS (2)
  - Foetal exposure during pregnancy [Unknown]
  - Small for dates baby [Recovered/Resolved]

NARRATIVE: CASE EVENT DATE: 20190321
